FAERS Safety Report 15974058 (Version 1)
Quarter: 2019Q1

REPORT INFORMATION
  Report Type: Spontaneous
  Country: BR (occurrence: BR)
  Receive Date: 20190217
  Receipt Date: 20190217
  Transmission Date: 20190418
  Serious: Yes (Other)
  Sender: FDA-Public Use
  Company Number: BR-009507513-1902BRA005656

PATIENT
  Age: 60 Year
  Sex: Female
  Weight: 63 kg

DRUGS (5)
  1. LOSARTAN. [Concomitant]
     Active Substance: LOSARTAN
     Indication: HYPERTENSION
     Dosage: 1 TABLET BY THE MORNING
     Route: 048
     Dates: start: 2012
  2. HYDROCHLOROTHIAZIDE. [Concomitant]
     Active Substance: HYDROCHLOROTHIAZIDE
     Indication: HYPERTENSION
     Dosage: 1 TABLET BY THE MORNING
     Route: 048
     Dates: start: 2012
  3. MARESIS [Concomitant]
     Indication: NASAL DRYNESS
     Dosage: 1 SPRAY IN EACH NOSTRIL QAM
     Dates: start: 2014
  4. SERETIDE [Concomitant]
     Active Substance: FLUTICASONE PROPIONATE\SALMETEROL XINAFOATE
     Indication: ASTHMA
     Dosage: 1 SPRAY DAILY
     Dates: start: 1998
  5. NASONEX [Suspect]
     Active Substance: MOMETASONE FUROATE
     Indication: RHINITIS
     Dosage: 1 SPRAY IN EACH NOSTRIL QPM
     Dates: start: 2014

REACTIONS (3)
  - Blood cholesterol abnormal [Unknown]
  - Cataract [Unknown]
  - Blood triglycerides abnormal [Unknown]

NARRATIVE: CASE EVENT DATE: 2014
